FAERS Safety Report 8266958-8 (Version None)
Quarter: 2012Q2

REPORT INFORMATION
  Report Type: 
  Country: None (occurrence: None)
  Receive Date: 20120405
  Receipt Date: 20120405
  Transmission Date: 20120825
  Serious: Yes (Hospitalization)
  Sender: FDA-Public Use
  Company Number: None

PATIENT
  Age: 63 Year
  Sex: Male
  Weight: 77.3 kg

DRUGS (1)
  1. CEFTRIAXONE [Suspect]
     Indication: UPPER RESPIRATORY TRACT INFECTION
     Dosage: 2 GM EVERY DAY IV
     Route: 042
     Dates: start: 20111214, end: 20111220

REACTIONS (1)
  - NEUTROPENIA [None]
